FAERS Safety Report 9688311 (Version 3)
Quarter: 2014Q1

REPORT INFORMATION
  Report Type: Spontaneous
  Country: JP (occurrence: JP)
  Receive Date: 20131114
  Receipt Date: 20140103
  Transmission Date: 20141002
  Serious: Yes (Death)
  Sender: FDA-Public Use
  Company Number: JP-BAYER-2013-130973

PATIENT
  Age: 65 Year
  Sex: Male
  Weight: 50 kg

DRUGS (7)
  1. STIVARGA [Suspect]
     Indication: COLORECTAL CANCER
     Dosage: 160 MG, QD
     Route: 048
     Dates: start: 20131023, end: 20131031
  2. STIVARGA [Suspect]
     Indication: COLORECTAL CANCER
     Dosage: 120 MG, QD
     Route: 048
     Dates: start: 20131101, end: 20131105
  3. LASIX [Concomitant]
     Dosage: DAILY DOSE 20 MG
     Route: 048
     Dates: end: 20131108
  4. DIGOXINE [Concomitant]
     Dosage: DAILY DOSE .125 MG
     Route: 048
     Dates: end: 20131108
  5. MAINTATE [Concomitant]
     Dosage: DAILY DOSE 5 MG
     Route: 048
     Dates: end: 20131108
  6. DABIGATRAN ETEXILATE [Concomitant]
     Dosage: DAILY DOSE 220 MG
     Route: 048
     Dates: end: 20131108
  7. NU-LOTAN [Concomitant]
     Dosage: DAILY DOSE 50 MG
     Route: 048
     Dates: end: 20131108

REACTIONS (3)
  - Vomiting [Recovered/Resolved]
  - Acute myocardial infarction [Fatal]
  - Hepatic function abnormal [Recovering/Resolving]
